FAERS Safety Report 7812362-3 (Version None)
Quarter: 2011Q4

REPORT INFORMATION
  Report Type: 
  Country: None (occurrence: None)
  Receive Date: 20111013
  Receipt Date: 20110922
  Transmission Date: 20120403
  Serious: Yes (Other)
  Sender: FDA-Public Use
  Company Number: BE-GLAXOSMITHKLINE-B0751371A

PATIENT
  Sex: Female
  Weight: 56 kg

DRUGS (3)
  1. EDRONAX [Concomitant]
     Dosage: 4MG PER DAY
     Dates: start: 20110822
  2. LAMOTRIGINE [Suspect]
     Indication: BIPOLAR DISORDER
     Dosage: 300MG PER DAY
     Dates: start: 20110917, end: 20110922
  3. VALDOXAN [Concomitant]
     Dosage: 25MG PER DAY
     Dates: start: 20110819, end: 20110922

REACTIONS (5)
  - ERYTHEMA [None]
  - HAEMATOMA [None]
  - RASH [None]
  - PRURITUS [None]
  - ECCHYMOSIS [None]
